FAERS Safety Report 7235793-1 (Version None)
Quarter: 2011Q1

REPORT INFORMATION
  Report Type: 
  Country: None (occurrence: None)
  Receive Date: 20110120
  Receipt Date: 20110110
  Transmission Date: 20110831
  Serious: Yes (Disabling, Other)
  Sender: FDA-Public Use
  Company Number: FR-MPIJNJ-2011-00102

PATIENT

DRUGS (12)
  1. VORICONAZOLE [Suspect]
     Dosage: 400 MG, UNK
     Dates: start: 20050620, end: 20050708
  2. AMPHOTERICIN B [Concomitant]
  3. VANCOMYCIN HCL [Concomitant]
  4. HEPARIN [Concomitant]
  5. GELOX [Concomitant]
  6. RANITIDINE [Concomitant]
  7. NEUPOGEN [Suspect]
     Dosage: 300 UG, UNK
     Route: 042
     Dates: start: 20050617, end: 20050623
  8. ACYCLOVIR [Concomitant]
  9. FLUCONAZOLE [Concomitant]
  10. VELCADE [Suspect]
     Indication: MULTIPLE MYELOMA
     Dosage: UNK
     Route: 042
     Dates: start: 20050604, end: 20050614
  11. MELPHALAN [Suspect]
     Dosage: 340 MG, UNK
     Route: 042
     Dates: start: 20050608, end: 20050608
  12. OMEPRAZOLE [Concomitant]

REACTIONS (7)
  - BONE MARROW FAILURE [None]
  - PYREXIA [None]
  - DIARRHOEA [None]
  - ATRIAL FIBRILLATION [None]
  - CARDIAC FAILURE [None]
  - ACUTE PULMONARY OEDEMA [None]
  - WEIGHT INCREASED [None]
